FAERS Safety Report 9691389 (Version 1)
Quarter: 2013Q4

REPORT INFORMATION
  Report Type: Spontaneous
  Country: GB (occurrence: GB)
  Receive Date: 20131115
  Receipt Date: 20131115
  Transmission Date: 20140711
  Serious: Yes (Other)
  Sender: FDA-Public Use
  Company Number: GB-PFIZER INC-2013324647

PATIENT
  Sex: Female

DRUGS (1)
  1. EFEXOR XL [Suspect]
     Dosage: 150 MG, UNK

REACTIONS (2)
  - Fall [Unknown]
  - Somnolence [Unknown]
